FAERS Safety Report 14237416 (Version 1)
Quarter: 2017Q4

REPORT INFORMATION
  Report Type: Spontaneous
  Country: CA (occurrence: CA)
  Receive Date: 20171129
  Receipt Date: 20171129
  Transmission Date: 20180321
  Serious: Yes (Death, Hospitalization, Other)
  Sender: FDA-Public Use
  Company Number: CA-TEVA-2017-CA-826670

PATIENT
  Age: 53 Year
  Sex: Male

DRUGS (7)
  1. AMPHOTERICIN B LIPOSOMAL [Suspect]
     Active Substance: AMPHOTERICIN B
     Indication: DISSEMINATED CRYPTOCOCCOSIS
     Route: 065
  2. VANCOMYCIN [Concomitant]
     Active Substance: VANCOMYCIN
     Indication: ANTIBIOTIC THERAPY
     Route: 042
  3. TACROLIMUS. [Suspect]
     Active Substance: TACROLIMUS
     Indication: IMMUNOSUPPRESSANT DRUG THERAPY
     Route: 065
  4. CEFTRIAXONE. [Concomitant]
     Active Substance: CEFTRIAXONE
     Indication: ANTIBIOTIC THERAPY
     Route: 042
  5. PREDNISOLONE. [Suspect]
     Active Substance: PREDNISOLONE
     Indication: IMMUNOSUPPRESSANT DRUG THERAPY
     Route: 065
  6. METRONIDAZOLE. [Concomitant]
     Active Substance: METRONIDAZOLE
     Indication: ANTIBIOTIC THERAPY
     Route: 042
  7. FLUCYTOSINE. [Concomitant]
     Active Substance: FLUCYTOSINE
     Indication: DISSEMINATED CRYPTOCOCCOSIS
     Dosage: 100 MG/KG/DAY
     Route: 065

REACTIONS (14)
  - Disseminated cryptococcosis [Fatal]
  - Acute kidney injury [Fatal]
  - Tension headache [Unknown]
  - Skin ulcer [Unknown]
  - Pruritus [Unknown]
  - Pyrexia [Unknown]
  - Renal failure [Fatal]
  - Osteomyelitis [Unknown]
  - Vomiting [Unknown]
  - Pancytopenia [Unknown]
  - Pulmonary mass [Unknown]
  - Intracranial pressure increased [Unknown]
  - Muscle abscess [Unknown]
  - Cerebral cyst [Unknown]
